FAERS Safety Report 11150893 (Version 2)
Quarter: 2015Q3

REPORT INFORMATION
  Report Type: Spontaneous
  Country: JP (occurrence: JP)
  Receive Date: 20150601
  Receipt Date: 20150709
  Transmission Date: 20151125
  Serious: Yes (Death)
  Sender: FDA-Public Use
  Company Number: JP-JNJFOC-20150520761

PATIENT
  Age: 79 Year
  Sex: Male
  Weight: 68 kg

DRUGS (3)
  1. AIMIX [Concomitant]
     Active Substance: AMLODIPINE BESYLATE\IRBESARTAN
     Route: 048
     Dates: start: 20141104, end: 20141121
  2. FEBURIC [Concomitant]
     Active Substance: FEBUXOSTAT
     Route: 065
     Dates: start: 20140929, end: 20141121
  3. CANAGLU [Suspect]
     Active Substance: CANAGLIFLOZIN
     Indication: TYPE 2 DIABETES MELLITUS
     Route: 048
     Dates: start: 20141121, end: 20141121

REACTIONS (1)
  - Cerebral haemorrhage [Fatal]

NARRATIVE: CASE EVENT DATE: 20141212
